FAERS Safety Report 6887212-2 (Version None)
Quarter: 2010Q3

REPORT INFORMATION
  Report Type: 
  Country: None (occurrence: None)
  Receive Date: 20100730
  Receipt Date: 20100721
  Transmission Date: 20110219
  Serious: Yes (Other)
  Sender: FDA-Public Use
  Company Number: US-PFIZER INC-2010047358

PATIENT
  Sex: Female
  Weight: 65.76 kg

DRUGS (12)
  1. NEURONTIN [Suspect]
     Indication: DIABETIC NEUROPATHY
     Dosage: 300 MG, 4X/DAY
     Route: 048
     Dates: start: 20081201
  2. NEURONTIN [Suspect]
     Dosage: 600 MG, 4X/DAY
     Route: 048
  3. NEURONTIN [Suspect]
     Dosage: UNK
  4. GLUCOTROL [Suspect]
     Dosage: UNK
  5. GLIPIZIDE [Suspect]
     Dosage: UNK
  6. AMBIEN [Suspect]
     Indication: INSOMNIA
     Dosage: UNK
  7. DARVOCET [Concomitant]
     Dosage: UNK
  8. METOPROLOL [Concomitant]
     Indication: ANGINA PECTORIS
     Dosage: UNK
  9. METOPROLOL [Concomitant]
     Indication: CHEST PAIN
  10. ACETYLSALICYLIC ACID [Concomitant]
     Dosage: 81 MG, DAILY
  11. NEXIUM [Concomitant]
     Indication: GASTROOESOPHAGEAL REFLUX DISEASE
     Dosage: UNK
  12. SITAGLIPTIN [Concomitant]
     Dosage: UNK

REACTIONS (2)
  - BLOOD GLUCOSE INCREASED [None]
  - GLYCOSURIA [None]
